FAERS Safety Report 4293030-4 (Version None)
Quarter: 2004Q1

REPORT INFORMATION
  Report Type: 
  Country: None (occurrence: None)
  Receive Date: 20040212
  Receipt Date: 20040202
  Transmission Date: 20041129
  Serious: Yes (Hospitalization)
  Sender: FDA-Public Use
  Company Number: FR-BRISTOL-MYERS SQUIBB COMPANY-12494993

PATIENT
  Age: 65 Year
  Sex: Male
  Weight: 95 kg

DRUGS (6)
  1. ASPIRIN [Suspect]
     Route: 048
     Dates: end: 19991008
  2. ECAZIDE [Suspect]
     Route: 048
  3. NAFTAZONE [Suspect]
     Route: 048
  4. FONZYLANE [Suspect]
     Route: 048
     Dates: start: 19990923, end: 19991006
  5. LIPANTHYL [Suspect]
     Route: 048
  6. PERMIXON [Suspect]
     Route: 048

REACTIONS (1)
  - VASCULAR PURPURA [None]
